FAERS Safety Report 4289302-X (Version None)
Quarter: 2004Q1

REPORT INFORMATION
  Report Type: 
  Country: None (occurrence: None)
  Receive Date: 20040203
  Receipt Date: 20010422
  Transmission Date: 20041129
  Serious: Yes (Other)
  Sender: FDA-Public Use
  Company Number: 2001-011

PATIENT
  Sex: Female

DRUGS (3)
  1. DORYX [Suspect]
     Dosage: 100 MG QD ORAL
     Route: 048
  2. ALLEGRA [Concomitant]
  3. ORTHO TRI-CYCLEN [Concomitant]

REACTIONS (1)
  - OESOPHAGITIS [None]
